FAERS Safety Report 15607284 (Version 1)
Quarter: 2018Q4

REPORT INFORMATION
  Report Type: Spontaneous
  Country: US (occurrence: US)
  Receive Date: 20181112
  Receipt Date: 20181112
  Transmission Date: 20190205
  Serious: Yes (Hospitalization)
  Sender: FDA-Public Use
  Company Number: US-LANNETT COMPANY, INC.-US-2018LAN001277

PATIENT
  Age: 42 Year
  Sex: Female

DRUGS (1)
  1. MORPHINE SULFATE. [Suspect]
     Active Substance: MORPHINE SULFATE
     Indication: ABDOMINAL PAIN
     Dosage: UNK
     Route: 037

REACTIONS (7)
  - Anaesthesia [Recovered/Resolved]
  - Asthenia [Recovered/Resolved]
  - Spinal cord oedema [Recovered/Resolved]
  - Radiculopathy [Recovered/Resolved]
  - Constipation [Recovered/Resolved]
  - Granuloma [Recovered/Resolved]
  - Urinary retention [Recovered/Resolved]
